FAERS Safety Report 6179426-4 (Version None)
Quarter: 2009Q2

REPORT INFORMATION
  Report Type: 
  Country: None (occurrence: None)
  Receive Date: 20090505
  Receipt Date: 20090430
  Transmission Date: 20091009
  Serious: Yes (Other)
  Sender: FDA-Public Use
  Company Number: B0517139A

PATIENT
  Sex: Male
  Weight: 105 kg

DRUGS (1)
  1. ZINACEF [Suspect]
     Indication: ACUTE SINUSITIS
     Route: 042
     Dates: start: 20080402, end: 20080402

REACTIONS (7)
  - BLOOD PRESSURE DECREASED [None]
  - HEART RATE DECREASED [None]
  - HYPERHIDROSIS [None]
  - HYPOTONIA [None]
  - PULSE ABNORMAL [None]
  - SYNCOPE [None]
  - TACHYCARDIA [None]
